FAERS Safety Report 9259154 (Version 1)
Quarter: 2013Q2

REPORT INFORMATION
  Report Type: Spontaneous
  Country: US (occurrence: US)
  Receive Date: 20130426
  Receipt Date: 20130426
  Transmission Date: 20140414
  Serious: Yes (Hospitalization, Disabling, Other)
  Sender: FDA-Public Use
  Company Number: CHPA2013US006927

PATIENT
  Age: 75 Year
  Sex: Female

DRUGS (6)
  1. EXCEDRIN MIGRAINE [Suspect]
     Indication: HEADACHE
     Dosage: 1 UNK, 5QD
     Route: 048
  2. EXCEDRIN MIGRAINE [Suspect]
     Indication: ARTHRALGIA
  3. EXCEDRIN MIGRAINE [Suspect]
     Indication: PAIN
  4. EXCEDRIN EXTRA STRENGTH [Suspect]
     Indication: ARTHRITIS
     Dosage: 1 UNK, 5QD
     Route: 048
     Dates: start: 1960
  5. EXCEDRIN EXTRA STRENGTH [Suspect]
     Indication: PAIN
  6. EXCEDRIN EXTRA STRENGTH [Suspect]
     Indication: HEADACHE

REACTIONS (20)
  - Hernia [Recovered/Resolved]
  - Activities of daily living impaired [Not Recovered/Not Resolved]
  - Concussion [Recovered/Resolved]
  - Anaesthetic complication cardiac [Recovered/Resolved]
  - Sleep apnoea syndrome [Not Recovered/Not Resolved]
  - Road traffic accident [Recovering/Resolving]
  - Synovial cyst [Recovered/Resolved]
  - Body height decreased [Not Recovered/Not Resolved]
  - Synovial rupture [Recovered/Resolved]
  - Osteoporosis [Not Recovered/Not Resolved]
  - Temporomandibular joint syndrome [Recovering/Resolving]
  - Intervertebral disc degeneration [Unknown]
  - Concomitant disease aggravated [Unknown]
  - Pain [Recovering/Resolving]
  - Arrhythmia [Recovered/Resolved]
  - Sudden onset of sleep [Not Recovered/Not Resolved]
  - Arthritis [Not Recovered/Not Resolved]
  - Headache [Recovered/Resolved]
  - Disease recurrence [Recovered/Resolved]
  - Poor quality sleep [Not Recovered/Not Resolved]
